FAERS Safety Report 7247247-7 (Version None)
Quarter: 2011Q1

REPORT INFORMATION
  Report Type: 
  Country: None (occurrence: None)
  Receive Date: 20110127
  Receipt Date: 20110106
  Transmission Date: 20110831
  Serious: Yes (Other)
  Sender: FDA-Public Use
  Company Number: US-BAYER-2011-002561

PATIENT
  Sex: Male
  Weight: 73 kg

DRUGS (2)
  1. ALEVE (CAPLET) [Suspect]
     Indication: HEADACHE
     Dosage: 220 MG, ONCE
     Route: 048
     Dates: start: 20100101, end: 20100101
  2. ANTIHYPERTENSIVES [Concomitant]

REACTIONS (2)
  - SWELLING FACE [None]
  - PHARYNGEAL OEDEMA [None]
